FAERS Safety Report 7451582-7 (Version None)
Quarter: 2011Q2

REPORT INFORMATION
  Report Type: 
  Country: None (occurrence: None)
  Receive Date: 20110502
  Receipt Date: 20100408
  Transmission Date: 20111010
  Serious: No
  Sender: FDA-Public Use
  Company Number: US-ASTRAZENECA-2010SE15749

PATIENT
  Age: 443 Month
  Sex: Female
  Weight: 67.1 kg

DRUGS (3)
  1. XANAX [Concomitant]
  2. BIRTH CONTROL [Concomitant]
  3. NEXIUM [Suspect]
     Indication: GASTROOESOPHAGEAL REFLUX DISEASE
     Route: 048
     Dates: start: 20100301

REACTIONS (4)
  - DRY MOUTH [None]
  - SENSATION OF FOREIGN BODY [None]
  - DYSPHAGIA [None]
  - CHOLELITHIASIS [None]
